FAERS Safety Report 8190668-9 (Version None)
Quarter: 2012Q1

REPORT INFORMATION
  Report Type: 
  Country: None (occurrence: None)
  Receive Date: 20120307
  Receipt Date: 20120227
  Transmission Date: 20120608
  Serious: Yes (Hospitalization)
  Sender: FDA-Public Use
  Company Number: DE-ROCHE-1043506

PATIENT
  Sex: Male
  Weight: 88 kg

DRUGS (1)
  1. AVASTIN [Suspect]
     Indication: BRONCHIAL CARCINOMA
     Dosage: LAST DOSE GIVEN ON 14 FEB 2012

REACTIONS (2)
  - GENERAL PHYSICAL HEALTH DETERIORATION [None]
  - DISEASE PROGRESSION [None]
